FAERS Safety Report 9632986 (Version 1)
Quarter: 2013Q4

REPORT INFORMATION
  Report Type: Spontaneous
  Country: GB (occurrence: GB)
  Receive Date: 20131018
  Receipt Date: 20131018
  Transmission Date: 20140711
  Serious: Yes (Other)
  Sender: FDA-Public Use
  Company Number: GB-PFIZER INC-2013296180

PATIENT
  Age: 66 Year
  Sex: Female
  Weight: 60 kg

DRUGS (10)
  1. GABAPENTIN [Suspect]
     Indication: NEURALGIA
     Dosage: 300 MG, 3X/DAY
     Route: 048
     Dates: start: 20130829, end: 20130830
  2. LEVETIRACETAM [Concomitant]
     Dosage: 500 MG, 2X/DAY
     Route: 048
  3. FERROUS FUMARATE [Concomitant]
     Dosage: 210 MG, 2X/DAY
     Route: 048
  4. OMEPRAZOLE [Concomitant]
     Dosage: 20 MG, 1X/DAY
     Route: 048
  5. SIMVASTATIN [Concomitant]
     Dosage: 1 TABLET AT NIGHT.
     Route: 048
  6. RAMIPRIL [Concomitant]
     Dosage: 2.5 MG, 1X/DAY
     Route: 048
  7. THIAMINE [Concomitant]
     Dosage: 100 MG, 1X/DAY
     Route: 048
  8. CLOPIDOGREL [Concomitant]
     Dosage: 75 MG, 1X/DAY
     Route: 048
  9. VENLAFAXINE [Concomitant]
     Dosage: 75 MG, 2X/DAY
     Route: 048
  10. VENLAFAXINE [Concomitant]
     Dosage: 37.5 MG, 2X/DAY
     Route: 048

REACTIONS (2)
  - Partial seizures [Recovered/Resolved]
  - Condition aggravated [Unknown]
